FAERS Safety Report 7347769-4 (Version None)
Quarter: 2011Q1

REPORT INFORMATION
  Report Type: 
  Country: None (occurrence: None)
  Receive Date: 20110311
  Receipt Date: 20110308
  Transmission Date: 20110831
  Serious: Yes (Disabling)
  Sender: FDA-Public Use
  Company Number: FR-PFIZER INC-2011050125

PATIENT
  Age: 44 Year
  Sex: Male

DRUGS (13)
  1. ARTOTEC [Concomitant]
     Dosage: 75MG/0.2MG
  2. ACTOS [Concomitant]
     Dosage: 30 MG
  3. DIALGIREX [Concomitant]
  4. AERIUS [Concomitant]
     Dosage: 5 MG
  5. EFFERALGAN [Concomitant]
  6. METFORMIN [Concomitant]
  7. TAHOR [Suspect]
     Dosage: 20 MG, 1X/DAY
     Dates: start: 20040716, end: 20100405
  8. MIOREL [Concomitant]
     Dosage: 4 MG
  9. NORDAZ [Concomitant]
     Dosage: 7.5 MG
  10. ALLOPURINOL [Concomitant]
  11. DI-ANTALVIC [Concomitant]
  12. TAHOR [Suspect]
     Indication: DYSLIPIDAEMIA
     Dosage: 10 MG, 1X/DAY
     Dates: start: 20040101, end: 20040715
  13. COLCHIMAX [Concomitant]

REACTIONS (2)
  - TENDONITIS [None]
  - TENDON RUPTURE [None]
